FAERS Safety Report 6469933-9 (Version None)
Quarter: 2009Q4

REPORT INFORMATION
  Report Type: 
  Country: None (occurrence: None)
  Receive Date: 20091203
  Receipt Date: 20071011
  Transmission Date: 20100525
  Serious: Yes (Hospitalization)
  Sender: FDA-Public Use
  Company Number: US-ELI_LILLY_AND_COMPANY-US200710003889

PATIENT
  Sex: Female
  Weight: 64.399 kg

DRUGS (8)
  1. BYETTA [Suspect]
     Indication: TYPE 2 DIABETES MELLITUS
     Dosage: 5 UG, 2/D
     Route: 058
     Dates: start: 20050101, end: 20060101
  2. BYETTA [Suspect]
     Dosage: 10 UG, 2/D
     Route: 058
     Dates: start: 20060101
  3. GEMFIBROZIL [Concomitant]
     Indication: BLOOD CHOLESTEROL
     Dosage: UNK, UNKNOWN
  4. GLYBURIDE [Concomitant]
     Indication: TYPE 2 DIABETES MELLITUS
     Dosage: 5 MG, OTHER
     Route: 048
  5. AVANDIA [Concomitant]
     Indication: TYPE 2 DIABETES MELLITUS
     Dosage: 8 MG, UNKNOWN
     Route: 048
  6. LORAZEPAM [Concomitant]
     Dosage: UNK, UNKNOWN
  7. HUMULIN N [Concomitant]
     Indication: TYPE 2 DIABETES MELLITUS
     Dosage: UNK, EACH EVENING
  8. METHADONE [Concomitant]
     Indication: PAIN
     Dosage: UNK, UNKNOWN
     Dates: start: 20040101

REACTIONS (11)
  - BACK PAIN [None]
  - BLOOD GLUCOSE DECREASED [None]
  - BLOOD GLUCOSE INCREASED [None]
  - CANDIDIASIS [None]
  - DRY MOUTH [None]
  - DYSGEUSIA [None]
  - FOOD CRAVING [None]
  - PAIN IN EXTREMITY [None]
  - SINUSITIS [None]
  - TREMOR [None]
  - WEIGHT DECREASED [None]
